FAERS Safety Report 16952861 (Version 1)
Quarter: 2019Q4

REPORT INFORMATION
  Report Type: Spontaneous
  Country: US (occurrence: US)
  Receive Date: 20191023
  Receipt Date: 20191023
  Transmission Date: 20200122
  Serious: Yes (Other)
  Sender: FDA-Public Use
  Company Number: US-HIKMA PHARMACEUTICALS USA INC.-US-H14001-19-49437

PATIENT
  Age: 65 Year
  Sex: Male

DRUGS (4)
  1. ECULIZUMAB [Concomitant]
     Active Substance: ECULIZUMAB
     Indication: THROMBOTIC MICROANGIOPATHY
     Route: 065
  2. CYCLOPHOSPHAMIDE. [Suspect]
     Active Substance: CYCLOPHOSPHAMIDE
     Indication: CHRONIC KIDNEY DISEASE
     Route: 065
  3. AZATHIOPRINE. [Suspect]
     Active Substance: AZATHIOPRINE
     Indication: CHRONIC KIDNEY DISEASE
     Route: 065
  4. PREDNISONE. [Suspect]
     Active Substance: PREDNISONE
     Indication: CHRONIC KIDNEY DISEASE
     Route: 065

REACTIONS (4)
  - Nocardiosis [Unknown]
  - Brain abscess [Unknown]
  - Cerebral haemorrhage [Unknown]
  - Lung abscess [Unknown]
